FAERS Safety Report 22040868 (Version 1)
Quarter: 2023Q1

REPORT INFORMATION
  Report Type: Spontaneous
  Country: US (occurrence: None)
  Receive Date: 20230224
  Receipt Date: 20230224
  Transmission Date: 20230418
  Serious: No
  Sender: FDA-Public Use
  Company Number: None

PATIENT
  Age: 39 Year
  Sex: Male

DRUGS (1)
  1. ERLOTINIB [Suspect]
     Active Substance: ERLOTINIB
     Dosage: OTHER FREQUENCY : OTHER;?
     Route: 048

REACTIONS (3)
  - Vomiting [None]
  - Influenza virus test positive [None]
  - Off label use [None]

NARRATIVE: CASE EVENT DATE: 20230220
